FAERS Safety Report 20190360 (Version 2)
Quarter: 2022Q1

REPORT INFORMATION
  Report Type: Spontaneous
  Country: US (occurrence: US)
  Receive Date: 20211215
  Receipt Date: 20220203
  Transmission Date: 20220423
  Serious: Yes (Hospitalization)
  Sender: FDA-Public Use
  Company Number: US-BIOVITRUM-2021US11990

PATIENT
  Age: 1 Year
  Sex: Female

DRUGS (1)
  1. SYNAGIS [Suspect]
     Active Substance: PALIVIZUMAB
     Indication: Heart disease congenital
     Dosage: DOSE-2100 MG VIALS
     Route: 030
     Dates: start: 20210803, end: 20211114

REACTIONS (1)
  - Respiratory syncytial virus infection [Recovered/Resolved]

NARRATIVE: CASE EVENT DATE: 20210803
